FAERS Safety Report 7334033-2 (Version None)
Quarter: 2011Q1

REPORT INFORMATION
  Report Type: 
  Country: None (occurrence: None)
  Receive Date: 20110301
  Receipt Date: 20110301
  Transmission Date: 20110831
  Serious: Yes (Other)
  Sender: FDA-Public Use
  Company Number: None

PATIENT
  Sex: Male
  Weight: 95.2554 kg

DRUGS (5)
  1. PURINETHOL [Suspect]
     Indication: CROHN'S DISEASE
     Dosage: 50MG DAILY PO
     Route: 048
  2. NORVASC [Concomitant]
  3. AZULFIDINE [Concomitant]
  4. HYZAAR [Concomitant]
  5. ATORVASTATIN CALCIUM [Concomitant]

REACTIONS (3)
  - CROHN'S DISEASE [None]
  - CONDITION AGGRAVATED [None]
  - PRODUCT SUBSTITUTION ISSUE [None]
